FAERS Safety Report 6569389-1 (Version None)
Quarter: 2010Q1

REPORT INFORMATION
  Report Type: 
  Country: None (occurrence: None)
  Receive Date: 20100204
  Receipt Date: 20100125
  Transmission Date: 20100710
  Serious: Yes (Death)
  Sender: FDA-Public Use
  Company Number: GB-RANBAXY-2010RR-30719

PATIENT
  Age: 55 Year
  Sex: Male

DRUGS (2)
  1. SERTRALINE HCL [Suspect]
  2. ZOPICLONE [Concomitant]

REACTIONS (1)
  - INTENTIONAL OVERDOSE [None]
